FAERS Safety Report 9509469 (Version 1)
Quarter: 2013Q3

REPORT INFORMATION
  Report Type: Spontaneous
  Country: US (occurrence: US)
  Receive Date: 20130909
  Receipt Date: 20130909
  Transmission Date: 20140515
  Serious: No
  Sender: FDA-Public Use
  Company Number: US-BRISTOL-MYERS SQUIBB COMPANY-18961599

PATIENT
  Sex: Male

DRUGS (1)
  1. ABILIFY [Suspect]
     Dosage: STRETCH IT:TAKING IT EVERY OTHER DAY OR CUTTING IT IN HALF, HE TOOK HIS LAST PILL LAST NIGHT.

REACTIONS (1)
  - Drug administration error [Unknown]
